FAERS Safety Report 13555190 (Version 1)
Quarter: 2017Q2

REPORT INFORMATION
  Report Type: Spontaneous
  Country: US (occurrence: US)
  Receive Date: 20170517
  Receipt Date: 20170517
  Transmission Date: 20170830
  Serious: Yes (Other)
  Sender: FDA-Public Use
  Company Number: US-JNJFOC-20170509315

PATIENT

DRUGS (1)
  1. HUMAN CLOTTABLE PROTEIN/HUMAN THROMBIN [Suspect]
     Active Substance: FIBRINOGEN HUMAN\THROMBIN HUMAN
     Indication: TISSUE SEALING
     Route: 061

REACTIONS (8)
  - Off label use [Unknown]
  - Eye operation [Unknown]
  - Cystoid macular oedema [Unknown]
  - Intraocular pressure increased [Unknown]
  - Device dislocation [Unknown]
  - Vitreous haemorrhage [Unknown]
  - Eye operation complication [Unknown]
  - Anterior chamber inflammation [Unknown]
